FAERS Safety Report 8233241-6 (Version None)
Quarter: 2012Q1

REPORT INFORMATION
  Report Type: 
  Country: None (occurrence: None)
  Receive Date: 20120326
  Receipt Date: 20120323
  Transmission Date: 20120608
  Serious: No
  Sender: FDA-Public Use
  Company Number: US-PFIZER INC-2012075894

PATIENT
  Sex: Male
  Weight: 99.773 kg

DRUGS (1)
  1. CHANTIX [Suspect]
     Indication: SMOKING CESSATION THERAPY
     Dosage: UNK
     Dates: start: 20120201, end: 20120301

REACTIONS (3)
  - MENTAL DISORDER [None]
  - DYSGEUSIA [None]
  - BRUXISM [None]
